FAERS Safety Report 4742574-7 (Version None)
Quarter: 2005Q3

REPORT INFORMATION
  Report Type: 
  Country: None (occurrence: None)
  Receive Date: 20050808
  Receipt Date: 20050725
  Transmission Date: 20060218
  Serious: Yes (Other)
  Sender: FDA-Public Use
  Company Number: USA050598600

PATIENT
  Age: 62 Year
  Sex: Female
  Weight: 81 kg

DRUGS (1)
  1. GEMZAR [Suspect]
     Indication: BREAST CANCER METASTATIC
     Dosage: 1700 MG WEEK
     Dates: start: 20050117, end: 20050502

REACTIONS (8)
  - ASCITES [None]
  - BONE MARROW TOXICITY [None]
  - HEPATIC CIRRHOSIS [None]
  - HEPATIC FAILURE [None]
  - HEPATOTOXICITY [None]
  - PYREXIA [None]
  - VENOOCCLUSIVE LIVER DISEASE [None]
  - WEIGHT INCREASED [None]
